FAERS Safety Report 7349068-3 (Version None)
Quarter: 2011Q1

REPORT INFORMATION
  Report Type: 
  Country: None (occurrence: None)
  Receive Date: 20110303
  Receipt Date: 20110217
  Transmission Date: 20110831
  Serious: No
  Sender: FDA-Public Use
  Company Number: 2011-00070

PATIENT
  Age: 90 Year
  Sex: Female

DRUGS (1)
  1. ZICAM NASAL PRODUCTS [Suspect]
     Dates: end: 20101201

REACTIONS (2)
  - AGEUSIA [None]
  - ANOSMIA [None]
